FAERS Safety Report 11659337 (Version 7)
Quarter: 2017Q3

REPORT INFORMATION
  Report Type: Spontaneous
  Country: CA (occurrence: CA)
  Receive Date: 20151026
  Receipt Date: 20170822
  Transmission Date: 20171127
  Serious: Yes (Other)
  Sender: FDA-Public Use
  Company Number: CA-ROCHE-1635327

PATIENT
  Age: 12 Year
  Sex: Male
  Weight: 56 kg

DRUGS (14)
  1. XOLAIR [Suspect]
     Active Substance: OMALIZUMAB
     Route: 058
     Dates: start: 20151013
  2. VENTOLIN [Concomitant]
     Active Substance: ALBUTEROL SULFATE
     Route: 065
  3. XOLAIR [Suspect]
     Active Substance: OMALIZUMAB
     Route: 058
     Dates: start: 20161122
  4. BETADERM (CANADA) [Concomitant]
  5. XOLAIR [Suspect]
     Active Substance: OMALIZUMAB
     Route: 058
     Dates: start: 20150915
  6. XOLAIR [Suspect]
     Active Substance: OMALIZUMAB
     Indication: ASTHMA
     Route: 058
     Dates: start: 20150707
  7. XOLAIR [Suspect]
     Active Substance: OMALIZUMAB
     Route: 058
     Dates: start: 20151110
  8. XOLAIR [Suspect]
     Active Substance: OMALIZUMAB
     Route: 058
     Dates: start: 20161024
  9. XOLAIR [Suspect]
     Active Substance: OMALIZUMAB
     Route: 058
     Dates: start: 20170417
  10. ZENHALE [Concomitant]
     Active Substance: FORMOTEROL FUMARATE\MOMETASONE FUROATE
     Dosage: 100/5 MCG
     Route: 065
  11. EPIPEN [Concomitant]
     Active Substance: EPINEPHRINE
  12. XOLAIR [Suspect]
     Active Substance: OMALIZUMAB
     Route: 058
  13. XOLAIR [Suspect]
     Active Substance: OMALIZUMAB
     Route: 058
     Dates: start: 20151211
  14. PREDNISONE. [Concomitant]
     Active Substance: PREDNISONE

REACTIONS (17)
  - Dyspnoea [Unknown]
  - Lip dry [Unknown]
  - Hypoaesthesia [Recovered/Resolved]
  - Headache [Unknown]
  - Heart rate increased [Unknown]
  - Pain [Unknown]
  - Swelling [Recovering/Resolving]
  - Lip pain [Unknown]
  - Blood pressure decreased [Unknown]
  - Urticaria [Unknown]
  - Crying [Unknown]
  - Arthralgia [Recovered/Resolved]
  - Ankle fracture [Unknown]
  - Pain in extremity [Recovered/Resolved]
  - Dizziness [Unknown]
  - Weight increased [Unknown]
  - Movement disorder [Recovered/Resolved]

NARRATIVE: CASE EVENT DATE: 20150916
